FAERS Safety Report 8131395 (Version 4)
Quarter: 2014Q3

REPORT INFORMATION
  Report Type: Spontaneous
  Country: US (occurrence: US)
  Receive Date: 20110912
  Receipt Date: 20140714
  Transmission Date: 20150326
  Serious: Yes (Hospitalization)
  Sender: FDA-Public Use
  Company Number: US-GLAXOSMITHKLINE-A0943794A

PATIENT
  Sex: Male
  Weight: 88.6 kg

DRUGS (2)
  1. AVANDIA [Suspect]
     Active Substance: ROSIGLITAZONE MALEATE
     Indication: DIABETES MELLITUS
     Route: 048
     Dates: start: 2004, end: 20040527
  2. AVANDAMET [Suspect]
     Active Substance: METFORMIN HYDROCHLORIDE\ROSIGLITAZONE MALEATE
     Indication: DIABETES MELLITUS
     Route: 048
     Dates: start: 20040119, end: 20040527

REACTIONS (5)
  - Ventricular tachycardia [Unknown]
  - Ventricular fibrillation [Unknown]
  - Myocardial infarction [Recovering/Resolving]
  - Aortic stenosis [Unknown]
  - Sudden cardiac death [Unknown]
